FAERS Safety Report 5748750-9 (Version None)
Quarter: 2008Q2

REPORT INFORMATION
  Report Type: 
  Country: None (occurrence: None)
  Receive Date: 20080522
  Receipt Date: 20080509
  Transmission Date: 20081010
  Serious: Yes (Hospitalization)
  Sender: FDA-Public Use
  Company Number: 233244J08USA

PATIENT
  Age: 31 Year
  Sex: Female

DRUGS (16)
  1. REBIF [Suspect]
     Indication: MULTIPLE SCLEROSIS
     Dosage: 44 MCG, 3 IN 1, SUBCUTANEOUS, 44 MCG, 3 IN 1 WEEKS, SUBCUTANEOUS
     Route: 058
     Dates: start: 20060101, end: 20071201
  2. REBIF [Suspect]
     Indication: MULTIPLE SCLEROSIS
     Dosage: 44 MCG, 3 IN 1, SUBCUTANEOUS, 44 MCG, 3 IN 1 WEEKS, SUBCUTANEOUS
     Route: 058
     Dates: start: 20080102
  3. METFORMIN HCL [Concomitant]
  4. GABAPENTIN [Concomitant]
  5. AMITRIPTYLINE HCL [Concomitant]
  6. ATENOLOL [Concomitant]
  7. BACLOFEN [Concomitant]
  8. ASPIRIN [Concomitant]
  9. CYCLOBENZAPRINE [Concomitant]
  10. OXYCODONE AND ACETAMINOPHEN (OXYCODONE/APAP) [Concomitant]
  11. LORATADINE [Concomitant]
  12. TOPAMAX [Concomitant]
  13. PROVASTATIN SODIUM (PRAVASTATIN SODIUM) [Concomitant]
  14. VESICARE [Concomitant]
  15. ACICPHEX (RABEPRAZOLE SODIUM) [Concomitant]
  16. XOPENEX [Concomitant]

REACTIONS (3)
  - CONDITION AGGRAVATED [None]
  - DIZZINESS [None]
  - MULTIPLE SCLEROSIS [None]
